FAERS Safety Report 10231065 (Version 1)
Quarter: 2014Q2

REPORT INFORMATION
  Report Type: Spontaneous
  Country: US (occurrence: None)
  Receive Date: 20140506
  Receipt Date: 20140506
  Transmission Date: 20141212
  Serious: Yes (Other)
  Sender: FDA-Public Use
  Company Number: 1351456

PATIENT
  Sex: Male

DRUGS (1)
  1. AVASTIN  (BEVACIZUMAB) [Suspect]
     Indication: BLADDER CANCER

REACTIONS (2)
  - Myocardial infarction [None]
  - Pulmonary embolism [None]
